APPROVED DRUG PRODUCT: ZOLPIDEM TARTRATE
Active Ingredient: ZOLPIDEM TARTRATE
Strength: 5MG
Dosage Form/Route: TABLET;ORAL
Application: A078616 | Product #001
Applicant: STRIDES PHARMA INTERNATIONAL AG
Approved: Nov 21, 2008 | RLD: No | RS: No | Type: DISCN